FAERS Safety Report 15843783 (Version 2)
Quarter: 2019Q2

REPORT INFORMATION
  Report Type: Report from Study
  Country: DE (occurrence: DE)
  Receive Date: 20190118
  Receipt Date: 20190405
  Transmission Date: 20190711
  Serious: Yes (Hospitalization)
  Sender: FDA-Public Use
  Company Number: DE-GILEAD-2019-0385463

PATIENT
  Sex: Male
  Weight: 78 kg

DRUGS (5)
  1. IDELALISIB [Suspect]
     Active Substance: IDELALISIB
     Indication: CHRONIC LYMPHOCYTIC LEUKAEMIA
     Dosage: 300 MG, QD
     Route: 048
     Dates: start: 20170810, end: 20181029
  2. EPO [ERYTHROPOIETIN] [Concomitant]
     Dosage: UNK
     Dates: start: 20180710
  3. TANNOLACT [Concomitant]
     Dosage: UNK
     Dates: start: 20181029, end: 20181108
  4. IMMUNGLOBULIN [Concomitant]
     Active Substance: HUMAN IMMUNOGLOBULIN G
     Dosage: UNK
     Dates: start: 20161028
  5. COTRIM FORTE [Concomitant]
     Active Substance: SULFAMETHOXAZOLE\TRIMETHOPRIM
     Dosage: UNK
     Dates: start: 20170810

REACTIONS (1)
  - Genital herpes [Recovered/Resolved]

NARRATIVE: CASE EVENT DATE: 20181029
